FAERS Safety Report 6272465-4 (Version None)
Quarter: 2009Q3

REPORT INFORMATION
  Report Type: 
  Country: None (occurrence: None)
  Receive Date: 20090715
  Receipt Date: 20090630
  Transmission Date: 20100115
  Serious: Yes (Death)
  Sender: FDA-Public Use
  Company Number: US-JNJFOC-200706-06593

PATIENT
  Age: 79 Year
  Sex: Female
  Weight: 52.1637 kg

DRUGS (23)
  1. DECITABINE  (DECITABINE) LYOPHILIZED POWDER [Suspect]
     Indication: MYELODYSPLASTIC SYNDROME
     Dosage: 30 MG 1 IN 1 DAY INTRAVENOUS
     Route: 042
     Dates: start: 20061012, end: 20061013
  2. LIPITOR [Concomitant]
  3. SYNTHROID (LEVOTHYROXINE SODIUM) UNSPECIFIED [Concomitant]
  4. SINGULAIR (MONTELUKAST) UNSPECIFIED [Concomitant]
  5. DURATEARS (AKWA TEARSA/01635801/) UNSPECIFIED [Concomitant]
  6. PROTONIX (PANTOPRAZOLE) UNSPECIFIED [Concomitant]
  7. DEMADEX (TORASEMIDE) UNSPECIFIED [Concomitant]
  8. ALBUTEROL (SALBUTAMOL) UNSPECIFIED [Concomitant]
  9. ATROVENT (IPRATROPIUM BROMIDE) UNSPECIFIED [Concomitant]
  10. FLOVENT (FLUTICASONE PROPIONATE) UNSPECIFIED [Concomitant]
  11. ULTRAM [Concomitant]
  12. DARVOCET (PROPACET) UNSPECIFIED [Concomitant]
  13. NEURONTIN (GABAPENTIN) UNSPECIFIED [Concomitant]
  14. CALCIUM WITH VITAMIN D (CALCIUM W/VITAMIN D NOS) [Concomitant]
  15. TYLENOL (PARACETAMOL) UNSPECIFIED [Concomitant]
  16. CENTRUM (CENTRUM /00554501/) UNSPECIFIED [Concomitant]
  17. VITAMIN B6 [Concomitant]
  18. LIDODERM (LIDOCAINE) UNSPECIFIED [Concomitant]
  19. ARANESP [Concomitant]
  20. AVELOX [Concomitant]
  21. LASIX [Concomitant]
  22. POTASSIUM CHLORIDE [Concomitant]
  23. QUININE (QUININE) [Concomitant]

REACTIONS (1)
  - ACUTE CORONARY SYNDROME [None]
